FAERS Safety Report 8967237 (Version 1)
Quarter: 2012Q4

REPORT INFORMATION
  Report Type: 
  Country: US (occurrence: US)
  Receive Date: 20121214
  Receipt Date: 20121214
  Transmission Date: 20130627
  Serious: No
  Sender: FDA-Public Use
  Company Number: US-GLAXOSMITHKLINE-A0965265A

PATIENT
  Age: 44 Year
  Sex: Female

DRUGS (3)
  1. FLONASE [Suspect]
     Indication: HOUSE DUST ALLERGY
     Dosage: 2SPR Twice per day
     Route: 045
     Dates: start: 2010, end: 20120125
  2. ZYRTEC [Concomitant]
  3. VITAMIN D [Concomitant]

REACTIONS (2)
  - Headache [Recovered/Resolved]
  - Nausea [Recovered/Resolved]
